FAERS Safety Report 4360958-6 (Version None)
Quarter: 2004Q2

REPORT INFORMATION
  Report Type: 
  Country: None (occurrence: None)
  Receive Date: 20040514
  Receipt Date: 20040408
  Transmission Date: 20050107
  Serious: Yes (Other)
  Sender: FDA-Public Use
  Company Number: SUSI-2004-00225

PATIENT
  Age: 6 Year
  Sex: Male
  Weight: 24.5 kg

DRUGS (6)
  1. ADDERALL XR 10 [Suspect]
     Indication: DISTURBANCE IN ATTENTION
     Dosage: 30 MG, 1 X/DAY, QD
  2. ADDERALL XR 10 [Suspect]
     Indication: PSYCHOMOTOR HYPERACTIVITY
     Dosage: 30 MG, 1 X/DAY, QD
  3. ADDERALL XR 10 [Suspect]
     Indication: DISTURBANCE IN ATTENTION
     Dosage: 20 MG, 1X/DAY, QD, ORAL
     Route: 048
  4. ADDERALL XR 10 [Suspect]
     Indication: PSYCHOMOTOR HYPERACTIVITY
     Dosage: 20 MG, 1X/DAY, QD, ORAL
     Route: 048
  5. ADDERALL XR 10 [Suspect]
     Indication: DISTURBANCE IN ATTENTION
     Dosage: 25 MG, 1X/DAY/QD
  6. ADDERALL XR 10 [Suspect]
     Indication: PSYCHOMOTOR HYPERACTIVITY
     Dosage: 25 MG, 1X/DAY/QD

REACTIONS (4)
  - ABNORMAL BEHAVIOUR [None]
  - ANGER [None]
  - PARANOIA [None]
  - PSYCHOTIC DISORDER [None]
